FAERS Safety Report 16103257 (Version 2)
Quarter: 2019Q2

REPORT INFORMATION
  Report Type: Spontaneous
  Country: US (occurrence: US)
  Receive Date: 20190322
  Receipt Date: 20190422
  Transmission Date: 20190711
  Serious: No
  Sender: FDA-Public Use
  Company Number: US-009507513-1902USA008749

PATIENT
  Age: 24 Year
  Sex: Female
  Weight: 86.62 kg

DRUGS (2)
  1. NEXPLANON [Suspect]
     Active Substance: ETONOGESTREL
     Indication: CONTRACEPTION
     Dosage: 68 MILLIGRAM EVERY 3 YEARS, INNER UPPER LEFT ARM
     Route: 059
     Dates: start: 20170330, end: 20190131
  2. NEXPLANON [Suspect]
     Active Substance: ETONOGESTREL
     Dosage: 1 DEVICE
     Route: 059
     Dates: start: 20190220

REACTIONS (2)
  - Device expulsion [Recovered/Resolved]
  - Contusion [Unknown]

NARRATIVE: CASE EVENT DATE: 201901
